FAERS Safety Report 23168087 (Version 1)
Quarter: 2023Q4

REPORT INFORMATION
  Report Type: Spontaneous
  Country: GB (occurrence: GB)
  Receive Date: 20231109
  Receipt Date: 20231109
  Transmission Date: 20240109
  Serious: Yes (Life-Threatening)
  Sender: FDA-Public Use
  Company Number: None

PATIENT
  Age: 10 Year
  Sex: Male

DRUGS (1)
  1. CEFTRIAXONE [Suspect]
     Active Substance: CEFTRIAXONE\CEFTRIAXONE SODIUM
     Indication: Influenza
     Dosage: 4 KG
     Route: 065
     Dates: start: 20231104, end: 20231107

REACTIONS (1)
  - Sensitive skin [Recovered/Resolved]

NARRATIVE: CASE EVENT DATE: 20231107
